FAERS Safety Report 9684491 (Version 1)
Quarter: 2013Q4

REPORT INFORMATION
  Report Type: Spontaneous
  Country: US (occurrence: US)
  Receive Date: 20131112
  Receipt Date: 20131112
  Transmission Date: 20140711
  Serious: Yes (Other)
  Sender: FDA-Public Use
  Company Number: US-ABBVIE-13P-163-1168043-00

PATIENT
  Sex: Female
  Weight: 56.75 kg

DRUGS (3)
  1. SYNTHROID [Suspect]
     Indication: HYPOTHYROIDISM
  2. SYNTHROID [Suspect]
  3. TISSUE PLASMINOGEN ACTIVATOR [Suspect]
     Indication: CEREBROVASCULAR ACCIDENT
     Dates: start: 201309, end: 201309

REACTIONS (9)
  - Cerebrovascular accident [Recovering/Resolving]
  - Pneumonia [Not Recovered/Not Resolved]
  - Unresponsive to stimuli [Recovered/Resolved]
  - Cerebral haemorrhage [Recovered/Resolved]
  - Hemiparesis [Not Recovered/Not Resolved]
  - Bedridden [Not Recovered/Not Resolved]
  - Abasia [Not Recovered/Not Resolved]
  - Aphasia [Not Recovered/Not Resolved]
  - Blood thyroid stimulating hormone increased [Not Recovered/Not Resolved]
